FAERS Safety Report 8457718-3 (Version None)
Quarter: 2012Q2

REPORT INFORMATION
  Report Type: 
  Country: None (occurrence: None)
  Receive Date: 20120618
  Receipt Date: 20120618
  Transmission Date: 20120825
  Serious: Yes (Disabling)
  Sender: FDA-Public Use
  Company Number: None

PATIENT
  Age: 55 Year
  Sex: Female
  Weight: 79.3795 kg

DRUGS (2)
  1. CLEARLAX PEG 3350 [Suspect]
     Indication: CONSTIPATION
     Dosage: ONE CAPFUL DAILY PO
     Route: 048
     Dates: start: 20100101, end: 20120307
  2. MIRALAX [Suspect]
     Indication: CONSTIPATION
     Dosage: ONE CAPFUL DAILY PO
     Route: 048
     Dates: start: 20100101, end: 20120307

REACTIONS (2)
  - DEMYELINATING POLYNEUROPATHY [None]
  - MUSCLE ATROPHY [None]
